FAERS Safety Report 18431020 (Version 1)
Quarter: 2020Q4

REPORT INFORMATION
  Report Type: Spontaneous
  Country: US (occurrence: US)
  Receive Date: 20201027
  Receipt Date: 20201027
  Transmission Date: 20210114
  Serious: No
  Sender: FDA-Public Use
  Company Number: US-PFIZER INC-2020411909

PATIENT

DRUGS (1)
  1. VENLAFAXINE HCL [Suspect]
     Active Substance: VENLAFAXINE HYDROCHLORIDE
     Dosage: 150 MG, 1X/DAY [I DON^T TAKE LIKE THE REGULAR 350MG I ONLY TAKE LIKE 150 A DAY]

REACTIONS (2)
  - Drug ineffective [Unknown]
  - Intentional product use issue [Unknown]
